FAERS Safety Report 6401529-7 (Version None)
Quarter: 2009Q4

REPORT INFORMATION
  Report Type: 
  Country: None (occurrence: None)
  Receive Date: 20091013
  Receipt Date: 20091013
  Transmission Date: 20100525
  Serious: Yes (Death)
  Sender: FDA-Public Use
  Company Number: None

PATIENT
  Age: 44 Year
  Sex: Female

DRUGS (1)
  1. DURAGESIC-25 [Suspect]
     Indication: NEURALGIA
     Dosage: 25 MG. ONE EV. 24 HRS.
     Dates: start: 20050920, end: 20050924

REACTIONS (3)
  - DISORIENTATION [None]
  - DYSPNOEA [None]
  - SOMNOLENCE [None]
